FAERS Safety Report 4351382-0 (Version None)
Quarter: 2004Q2

REPORT INFORMATION
  Report Type: 
  Country: None (occurrence: None)
  Receive Date: 20040428
  Receipt Date: 20040414
  Transmission Date: 20050107
  Serious: Yes (Other)
  Sender: FDA-Public Use
  Company Number: USA040464871

PATIENT
  Age: 74 Year
  Sex: Female
  Weight: 102 kg

DRUGS (1)
  1. HUMULIN 70/30 [Suspect]
     Indication: DIABETES MELLITUS
     Dosage: 50 U/DAY
     Dates: start: 19890101

REACTIONS (3)
  - BLINDNESS UNILATERAL [None]
  - GLAUCOMA [None]
  - VISUAL ACUITY REDUCED [None]
